FAERS Safety Report 7635876-8 (Version None)
Quarter: 2011Q3

REPORT INFORMATION
  Report Type: 
  Country: None (occurrence: None)
  Receive Date: 20110726
  Receipt Date: 20110719
  Transmission Date: 20111222
  Serious: Yes (Other)
  Sender: FDA-Public Use
  Company Number: AU-JNJFOC-20110508917

PATIENT
  Sex: Female

DRUGS (3)
  1. PENICILLIN [Concomitant]
     Indication: PROPHYLAXIS
  2. SIMPONI [Suspect]
     Route: 058
     Dates: start: 20110715
  3. SIMPONI [Suspect]
     Indication: PSORIATIC ARTHROPATHY
     Route: 058
     Dates: start: 20110421

REACTIONS (3)
  - TONSILLITIS [None]
  - PERTUSSIS [None]
  - OROPHARYNGEAL PAIN [None]
